FAERS Safety Report 12339522 (Version 1)
Quarter: 2016Q2

REPORT INFORMATION
  Report Type: Spontaneous
  Country: US (occurrence: US)
  Receive Date: 20160505
  Receipt Date: 20160505
  Transmission Date: 20160815
  Serious: No
  Sender: FDA-Public Use
  Company Number: US-AMGEN-USASP2015122882

PATIENT
  Age: 58 Year
  Sex: Female

DRUGS (1)
  1. ARANESP [Suspect]
     Active Substance: DARBEPOETIN ALFA
     Indication: RENAL FAILURE
     Dosage: 100 MUG / 0.5 ML, UNK
     Route: 065
     Dates: start: 2013

REACTIONS (3)
  - Drug dose omission [Unknown]
  - Irritability [Unknown]
  - Device malfunction [Unknown]

NARRATIVE: CASE EVENT DATE: 201511
